FAERS Safety Report 7212235-3 (Version None)
Quarter: 2010Q4

REPORT INFORMATION
  Report Type: 
  Country: None (occurrence: None)
  Receive Date: 20101227
  Receipt Date: 20101210
  Transmission Date: 20110411
  Serious: Yes (Hospitalization)
  Sender: FDA-Public Use
  Company Number: LEO-2010-01127

PATIENT
  Age: 74 Year
  Sex: Female

DRUGS (1)
  1. INNOHEP [Suspect]
     Indication: PULMONARY EMBOLISM
     Dosage: 0.5 ML (10000 IU), SUBCUTANEOUS
     Route: 058
     Dates: start: 20101108, end: 20101118

REACTIONS (2)
  - HAEMATOMA [None]
  - INCORRECT DOSE ADMINISTERED [None]
